FAERS Safety Report 13940939 (Version 2)
Quarter: 2017Q3

REPORT INFORMATION
  Report Type: Spontaneous
  Country: ML (occurrence: ML)
  Receive Date: 20170906
  Receipt Date: 20170918
  Transmission Date: 20171127
  Serious: Yes (Other)
  Sender: FDA-Public Use
  Company Number: PHHY2017ML130828

PATIENT
  Age: 28 Year
  Sex: Female

DRUGS (4)
  1. OSPAMOX [Concomitant]
     Active Substance: AMOXICILLIN
     Indication: HELICOBACTER INFECTION
     Dosage: 1 G, BID
     Route: 048
  2. SUPPLIN [Concomitant]
     Indication: HELICOBACTER INFECTION
     Dosage: 500 MG, BID
     Route: 048
  3. PROBITOR [Concomitant]
     Indication: HELICOBACTER INFECTION
     Dosage: 20 MG, BID
     Route: 048
  4. BINOCLAR [Suspect]
     Active Substance: CLARITHROMYCIN
     Indication: HELICOBACTER INFECTION
     Dosage: 500 MG, BID
     Route: 048
     Dates: start: 20170817, end: 20170826

REACTIONS (2)
  - Conjunctival haemorrhage [Recovered/Resolved]
  - Swelling face [Recovered/Resolved]

NARRATIVE: CASE EVENT DATE: 20170818
